FAERS Safety Report 6931665-8 (Version None)
Quarter: 2010Q3

REPORT INFORMATION
  Report Type: 
  Country: None (occurrence: None)
  Receive Date: 20100812
  Receipt Date: 20100722
  Transmission Date: 20110219
  Serious: No
  Sender: FDA-Public Use
  Company Number: 2010-00531

PATIENT
  Age: 56 Year
  Sex: Male

DRUGS (1)
  1. ZICAM NASAL PRODUCTS [Suspect]

REACTIONS (2)
  - AGEUSIA [None]
  - ANOSMIA [None]
